FAERS Safety Report 6227892-8 (Version None)
Quarter: 2009Q2

REPORT INFORMATION
  Report Type: 
  Country: None (occurrence: None)
  Receive Date: 20090612
  Receipt Date: 20090611
  Transmission Date: 20091009
  Serious: Yes (Life-Threatening, Hospitalization)
  Sender: FDA-Public Use
  Company Number: B0539423A

PATIENT
  Sex: Female
  Weight: 0.9 kg

DRUGS (9)
  1. AVANDIA [Suspect]
     Dates: end: 20070216
  2. EFFEXOR [Suspect]
  3. ZANIDIP [Suspect]
     Dates: end: 20070216
  4. MEPRONIZINE [Suspect]
     Dates: start: 20050301
  5. ALDOMET [Suspect]
     Dates: start: 20070220, end: 20070428
  6. ATARAX [Suspect]
     Dates: start: 20070201
  7. INSULINE [Concomitant]
     Dates: start: 20070215
  8. TRANDATE [Concomitant]
  9. NICARDIPINE HCL [Concomitant]

REACTIONS (9)
  - BRONCHOPULMONARY DYSPLASIA [None]
  - FOETAL ARRHYTHMIA [None]
  - FOETAL GROWTH RETARDATION [None]
  - HYPOTONIA [None]
  - JAUNDICE NEONATAL [None]
  - NEONATAL RESPIRATORY DISTRESS SYNDROME [None]
  - PATENT DUCTUS ARTERIOSUS [None]
  - PREMATURE BABY [None]
  - PULMONARY ARTERIAL HYPERTENSION [None]
